FAERS Safety Report 9424422 (Version 3)
Quarter: 2019Q3

REPORT INFORMATION
  Report Type: Report from Study
  Country: PL (occurrence: PL)
  Receive Date: 20130729
  Receipt Date: 20190713
  Transmission Date: 20191005
  Serious: Yes (Hospitalization)
  Sender: FDA-Public Use
  Company Number: PL-UCBSA-092912

PATIENT
  Age: 68 Year
  Sex: Male
  Weight: 63 kg

DRUGS (7)
  1. ZOCOR [Concomitant]
     Active Substance: SIMVASTATIN
     Indication: MYOCARDIAL ISCHAEMIA
     Dosage: 20 MG, ONCE DAILY (QD)
     Route: 048
     Dates: start: 2008
  2. LISINORATIO [Concomitant]
     Indication: HYPERTENSION
     Dosage: 20 MG, ONCE DAILY (QD)
     Route: 048
     Dates: start: 20120531
  3. POLOCARD [Concomitant]
     Active Substance: ASPIRIN
     Indication: MYOCARDIAL ISCHAEMIA
     Dosage: 75 MG, ONCE DAILY (QD)
     Route: 048
     Dates: start: 20060310
  4. BIOPRAZOL [Concomitant]
     Indication: PROPHYLAXIS
     Dosage: 20 MG, ONCE DAILY (QD)
     Route: 048
     Dates: start: 20060310, end: 20130725
  5. CERTOLIZUMAB PEGOL VS PLACEBO [Suspect]
     Active Substance: CERTOLIZUMAB PEGOL
     Indication: AXIAL SPONDYLOARTHRITIS
     Dosage: NO OF DOSES RECEIVED: 49
     Route: 058
     Dates: start: 20111103, end: 20130422
  6. SORBIFER DURULES [Concomitant]
     Active Substance: FERROUS SULFATE
     Indication: IRON DEFICIENCY ANAEMIA
     Dosage: QD
     Route: 048
     Dates: start: 20130309
  7. ARTROTEC FORTE [Concomitant]
     Indication: SPONDYLITIS
     Dosage: BID
     Route: 048
     Dates: start: 200409

REACTIONS (1)
  - Lower gastrointestinal haemorrhage [Recovered/Resolved]

NARRATIVE: CASE EVENT DATE: 20130719
